FAERS Safety Report 18199487 (Version 1)
Quarter: 2020Q3

REPORT INFORMATION
  Report Type: Spontaneous
  Country: US (occurrence: US)
  Receive Date: 20200826
  Receipt Date: 20200826
  Transmission Date: 20201103
  Serious: No
  Sender: FDA-Public Use
  Company Number: US-APOTEX-2020AP016841

PATIENT
  Sex: Female

DRUGS (1)
  1. RISEDRONATE SODIUM TABLETS USP [Suspect]
     Active Substance: RISEDRONATE SODIUM
     Indication: PRODUCT USED FOR UNKNOWN INDICATION
     Dosage: 150 MILLIGRAM, Q.M.T.
     Route: 048

REACTIONS (1)
  - Pain [Unknown]
